FAERS Safety Report 4753909-3 (Version None)
Quarter: 2005Q3

REPORT INFORMATION
  Report Type: 
  Country: None (occurrence: None)
  Receive Date: 20050825
  Receipt Date: 20050809
  Transmission Date: 20060218
  Serious: Yes (Other)
  Sender: FDA-Public Use
  Company Number: 2005BI005103

PATIENT
  Age: 53 Year
  Sex: Female
  Weight: 88.4514 kg

DRUGS (14)
  1. AVONEX [Suspect]
     Indication: MULTIPLE SCLEROSIS
     Dosage: 30 UG;QW; IM
     Route: 030
     Dates: start: 19990121, end: 20030101
  2. AVONEX [Suspect]
     Indication: MULTIPLE SCLEROSIS
     Dosage: 30 UG;QW; IM
     Route: 030
     Dates: start: 20030101
  3. BACLOFEN [Concomitant]
  4. ADVAIR DISKUS 100/50 [Concomitant]
  5. SINGULAIR [Concomitant]
  6. PRINIVIL [Concomitant]
  7. ASPIRIN [Concomitant]
  8. ALBUTEROL [Concomitant]
  9. FLONASE [Concomitant]
  10. PROTONIX [Concomitant]
  11. ZOLOFT [Concomitant]
  12. NORVASC [Concomitant]
  13. MUCINEX [Concomitant]
  14. HYDROCHLOROTHIAZIDE [Concomitant]

REACTIONS (10)
  - ASTHMA [None]
  - CONDITION AGGRAVATED [None]
  - FALL [None]
  - HAEMORRHAGIC STROKE [None]
  - HYPERTENSION [None]
  - INFLUENZA LIKE ILLNESS [None]
  - MULTIPLE SCLEROSIS [None]
  - RESPIRATORY TRACT INFECTION [None]
  - SINUSITIS [None]
  - TRAUMATIC HAEMORRHAGE [None]
